FAERS Safety Report 6417761-2 (Version None)
Quarter: 2009Q4

REPORT INFORMATION
  Report Type: 
  Country: None (occurrence: None)
  Receive Date: 20091026
  Receipt Date: 20091013
  Transmission Date: 20100525
  Serious: Yes (Disabling)
  Sender: FDA-Public Use
  Company Number: ADR38412009

PATIENT
  Age: 67 Year
  Sex: 0

DRUGS (2)
  1. SIMVASTATIN [Suspect]
     Indication: HYPERCHOLESTEROLAEMIA
     Dosage: 20 MG ORAL
     Route: 048
     Dates: end: 20070401
  2. AZATHIOPRINE [Concomitant]

REACTIONS (2)
  - COUGH [None]
  - SLEEP DISORDER [None]
